FAERS Safety Report 9149339 (Version 1)
Quarter: 2013Q1

REPORT INFORMATION
  Report Type: Spontaneous
  Country: GB (occurrence: None)
  Receive Date: 20130131
  Receipt Date: 20130131
  Transmission Date: 20140127
  Serious: Yes (Disabling)
  Sender: FDA-Public Use
  Company Number: GER/UKI/13/0027631

PATIENT
  Age: 35 Year
  Sex: Female

DRUGS (2)
  1. LAMOTRIGINE (LAMOTRIGINE) [Suspect]
     Indication: PRODUCT USED FOR UNKNOWN INDICATION
  2. METRONIDAZOLE (METRONIDAZOLE) [Suspect]
     Indication: TOOTH INFECTION
     Route: 048
     Dates: start: 20121222, end: 20121229

REACTIONS (2)
  - Epilepsy [None]
  - Drug interaction [None]
